FAERS Safety Report 22202711 (Version 1)
Quarter: 2023Q2

REPORT INFORMATION
  Report Type: Spontaneous
  Country: US (occurrence: US)
  Receive Date: 20230412
  Receipt Date: 20230412
  Transmission Date: 20230722
  Serious: Yes (Other)
  Sender: FDA-Public Use
  Company Number: US-PFIZER INC-202300149258

PATIENT
  Age: 56 Year
  Sex: Female

DRUGS (1)
  1. PAXLOVID [Suspect]
     Active Substance: NIRMATRELVIR\RITONAVIR
     Indication: COVID-19 treatment
     Dosage: UNK
     Dates: start: 20230409, end: 20230410

REACTIONS (5)
  - Atrial fibrillation [Recovered/Resolved]
  - Heart rate abnormal [Recovered/Resolved]
  - Dysgeusia [Recovered/Resolved]
  - Hypoaesthesia oral [Recovered/Resolved]
  - Feeling abnormal [Recovered/Resolved]

NARRATIVE: CASE EVENT DATE: 20230409
